FAERS Safety Report 22369127 (Version 2)
Quarter: 2023Q2

REPORT INFORMATION
  Report Type: Spontaneous
  Country: US (occurrence: US)
  Receive Date: 20230525
  Receipt Date: 20230620
  Transmission Date: 20230721
  Serious: Yes (Hospitalization)
  Sender: FDA-Public Use
  Company Number: US-BRISTOL-MYERS SQUIBB COMPANY-2023-071536

PATIENT
  Age: 73 Year
  Sex: Female
  Weight: 57.15 kg

DRUGS (1)
  1. REVLIMID [Suspect]
     Active Substance: LENALIDOMIDE
     Indication: Plasma cell myeloma
     Dosage: 2WKSON,1WKOFF, QD 14DON7DOFF (DAILY 14 DAY ON 7 DAY OFF)
     Route: 048

REACTIONS (4)
  - Hospitalisation [Unknown]
  - Off label use [Unknown]
  - Hypoaesthesia [Recovering/Resolving]
  - Tremor [Recovering/Resolving]
